FAERS Safety Report 9409475 (Version 2)
Quarter: 2013Q3

REPORT INFORMATION
  Report Type: Report from Study
  Country: CA (occurrence: CA)
  Receive Date: 20130719
  Receipt Date: 20130917
  Transmission Date: 20140515
  Serious: Yes (Other)
  Sender: FDA-Public Use
  Company Number: CA-ROCHE-1250625

PATIENT
  Sex: Female

DRUGS (10)
  1. HERCEPTIN [Suspect]
     Indication: OESOPHAGEAL CANCER METASTATIC
     Dosage: PATIENT^S LAST INFUSION OF HERCEPTIN WAS RECEIVED 07/MAY/13
     Route: 042
     Dates: start: 20130326
  2. HYDROMORPHONE [Concomitant]
  3. GRAVOL [Concomitant]
  4. STEMETIL [Concomitant]
  5. CIPRALEX [Concomitant]
  6. NEXIUM [Concomitant]
  7. ZOFRAN [Concomitant]
  8. FENTANYL [Concomitant]
  9. TYLENOL EXTRA STRENGTH [Concomitant]
  10. ATIVAN [Concomitant]

REACTIONS (1)
  - Metastases to central nervous system [Unknown]
